FAERS Safety Report 10298520 (Version 5)
Quarter: 2017Q1

REPORT INFORMATION
  Report Type: Report from Study
  Country: BR (occurrence: BR)
  Receive Date: 20140711
  Receipt Date: 20170331
  Transmission Date: 20170428
  Serious: Yes (Other)
  Sender: FDA-Public Use
  Company Number: PHHY2014BR085281

PATIENT
  Age: 41 Year
  Sex: Female
  Weight: 136 kg

DRUGS (2)
  1. FLUOXETINE [Concomitant]
     Active Substance: FLUOXETINE HYDROCHLORIDE
     Indication: PAIN
     Dosage: 1 DF, DAILY
     Route: 065
  2. GILENYA [Suspect]
     Active Substance: FINGOLIMOD HYDROCHLORIDE
     Indication: MULTIPLE SCLEROSIS
     Dosage: 0.5 MG, QD
     Route: 048
     Dates: start: 20140606

REACTIONS (10)
  - Blood pressure fluctuation [Unknown]
  - Spinal disorder [Unknown]
  - Hypertension [Recovered/Resolved]
  - Hypoaesthesia [Recovered/Resolved]
  - Fall [Unknown]
  - Fatigue [Unknown]
  - Gait disturbance [Unknown]
  - Hypotension [Recovered/Resolved]
  - Paraesthesia [Recovered/Resolved]
  - Weight increased [Unknown]

NARRATIVE: CASE EVENT DATE: 201701
